FAERS Safety Report 11207791 (Version 1)
Quarter: 2015Q2

REPORT INFORMATION
  Report Type: Report from Study
  Country: US (occurrence: US)
  Receive Date: 20150622
  Receipt Date: 20150622
  Transmission Date: 20150821
  Serious: No
  Sender: FDA-Public Use
  Company Number: US-ABBVIE-15P-163-1374046-00

PATIENT
  Age: 51 Year
  Sex: Female

DRUGS (3)
  1. MODERIBA [Suspect]
     Active Substance: RIBAVIRIN
     Indication: HEPATITIS C
     Route: 048
     Dates: start: 20150201, end: 20150407
  2. MODERIBA [Suspect]
     Active Substance: RIBAVIRIN
     Route: 048
     Dates: start: 20150408
  3. VIEKIRA PAK [Suspect]
     Active Substance: DASABUVIR\OMBITASVIR\PARITAPREVIR\RITONAVIR
     Indication: HEPATITIS C
     Route: 048
     Dates: start: 20150201

REACTIONS (3)
  - Expired product administered [Not Recovered/Not Resolved]
  - Anaemia [Not Recovered/Not Resolved]
  - Drug dispensing error [Unknown]

NARRATIVE: CASE EVENT DATE: 201504
